FAERS Safety Report 14616940 (Version 3)
Quarter: 2018Q2

REPORT INFORMATION
  Report Type: Report from Study
  Country: US (occurrence: US)
  Receive Date: 20180309
  Receipt Date: 20180408
  Transmission Date: 20180711
  Serious: Yes (Hospitalization, Other)
  Sender: FDA-Public Use
  Company Number: US-TESARO, INC-US-2018TSO00703

PATIENT

DRUGS (15)
  1. VENLAFAXINE HCL [Concomitant]
     Active Substance: VENLAFAXINE HYDROCHLORIDE
     Indication: PRODUCT USED FOR UNKNOWN INDICATION
     Dosage: 1 DF, QD
     Route: 048
     Dates: start: 20160609, end: 20160609
  2. XARELTO [Concomitant]
     Active Substance: RIVAROXABAN
     Indication: PRODUCT USED FOR UNKNOWN INDICATION
     Dosage: 1 DF, BID
     Route: 048
     Dates: start: 20180223, end: 20180223
  3. OTEZLA [Concomitant]
     Active Substance: APREMILAST
     Indication: NAUSEA
     Dosage: UNK
     Dates: start: 20170209
  4. XARELTO [Concomitant]
     Active Substance: RIVAROXABAN
     Dosage: 1 DF, QD
     Route: 048
     Dates: start: 20180223, end: 20180223
  5. DEXAMETHASONE. [Concomitant]
     Active Substance: DEXAMETHASONE
     Indication: PRODUCT USED FOR UNKNOWN INDICATION
     Dosage: 2 DF, BID
     Route: 048
     Dates: start: 20160202, end: 20170907
  6. METOPROLOL TARTRATE. [Concomitant]
     Active Substance: METOPROLOL TARTRATE
     Indication: PRODUCT USED FOR UNKNOWN INDICATION
     Dosage: 100 MG, UNK
     Route: 048
     Dates: start: 20160201
  7. POTASSIUM CHLORIDE. [Concomitant]
     Active Substance: POTASSIUM CHLORIDE
     Indication: PRODUCT USED FOR UNKNOWN INDICATION
     Dosage: 2 DF, BID
     Route: 048
     Dates: start: 20160607, end: 20171005
  8. PROMETHAZINE HCL [Concomitant]
     Active Substance: PROMETHAZINE HYDROCHLORIDE
     Indication: NAUSEA
     Dosage: 1 DF, PRN
     Route: 054
     Dates: start: 20160202, end: 20170705
  9. METHOTREXATE. [Suspect]
     Active Substance: METHOTREXATE
     Indication: PRODUCT USED FOR UNKNOWN INDICATION
     Dosage: 2.5 MG, UNK
     Route: 048
     Dates: start: 20160201
  10. ZEJULA [Suspect]
     Active Substance: NIRAPARIB
     Dosage: 300 MG, QD
     Route: 048
     Dates: end: 20180308
  11. LEXAPRO [Concomitant]
     Active Substance: ESCITALOPRAM OXALATE
     Indication: PRODUCT USED FOR UNKNOWN INDICATION
     Dosage: 1 DF, QD
     Route: 048
     Dates: start: 20160211
  12. ONDANSETRON HCL [Concomitant]
     Active Substance: ONDANSETRON HYDROCHLORIDE
     Indication: NAUSEA
     Dosage: 1 DF, PRN
     Route: 048
     Dates: start: 20160202, end: 20170901
  13. PROMETHAZINE HCL [Concomitant]
     Active Substance: PROMETHAZINE HYDROCHLORIDE
     Indication: VOMITING
  14. ZEJULA [Suspect]
     Active Substance: NIRAPARIB
     Indication: OVARIAN CANCER
     Dosage: 300 MG, QD
     Route: 048
     Dates: start: 20180104
  15. LIPITOR [Concomitant]
     Active Substance: ATORVASTATIN CALCIUM
     Indication: PRODUCT USED FOR UNKNOWN INDICATION
     Dosage: 40 MG, UNK
     Dates: start: 20170209

REACTIONS (28)
  - Drug intolerance [Unknown]
  - Dyspnoea [Recovered/Resolved]
  - Bone marrow failure [Unknown]
  - Hypercholesterolaemia [Unknown]
  - Impaired quality of life [Unknown]
  - Anaemia [Not Recovered/Not Resolved]
  - Arthralgia [Unknown]
  - Blood pressure increased [Unknown]
  - Anxiety [Unknown]
  - Cystitis [Unknown]
  - Dehydration [Unknown]
  - Ascites [Unknown]
  - Palpitations [Not Recovered/Not Resolved]
  - Cough [Unknown]
  - Intervertebral disc degeneration [Unknown]
  - Fatigue [Not Recovered/Not Resolved]
  - Hypokalaemia [Unknown]
  - Urinary tract infection [Unknown]
  - Thrombosis [Not Recovered/Not Resolved]
  - Deep vein thrombosis [Unknown]
  - Psoriasis [Unknown]
  - Loss of personal independence in daily activities [Not Recovered/Not Resolved]
  - Depression [Unknown]
  - Heart rate increased [Recovered/Resolved]
  - Laboratory test abnormal [Unknown]
  - Urine analysis abnormal [Unknown]
  - Psoriatic arthropathy [Unknown]
  - Neutropenia [Unknown]
